FAERS Safety Report 8066545-0 (Version None)
Quarter: 2012Q1

REPORT INFORMATION
  Report Type: 
  Country: None (occurrence: None)
  Receive Date: 20120124
  Receipt Date: 20120117
  Transmission Date: 20120608
  Serious: Yes (Life-Threatening, Hospitalization)
  Sender: FDA-Public Use
  Company Number: PHHO2012ES001201

PATIENT
  Sex: Male

DRUGS (6)
  1. TASIGNA [Suspect]
     Indication: CHRONIC MYELOID LEUKAEMIA
     Dosage: 300 MG, BID
     Route: 048
     Dates: start: 20110201, end: 20120102
  2. VALSARTAN [Concomitant]
     Indication: HYPERTENSION
     Dosage: 160 MG, DAILY
     Route: 048
  3. TORSEMIDE [Concomitant]
     Dosage: DOSE REDUCED
     Dates: start: 20120103
  4. DIGOXIN [Concomitant]
     Indication: ATRIAL FIBRILLATION
     Dosage: 5 MG, DAILY
     Route: 048
  5. TORSEMIDE [Concomitant]
     Indication: ATRIAL FIBRILLATION
     Dosage: UNK
     Dates: end: 20120102
  6. LEXATIN [Concomitant]
     Indication: ANXIETY
     Dosage: 1.5 MG, DAILY
     Route: 048

REACTIONS (2)
  - MYOCARDIAL INFARCTION [None]
  - DIABETES MELLITUS [None]
